FAERS Safety Report 4698630-5 (Version None)
Quarter: 2005Q2

REPORT INFORMATION
  Report Type: 
  Country: None (occurrence: None)
  Receive Date: 20050622
  Receipt Date: 20050617
  Transmission Date: 20051028
  Serious: Yes (Other)
  Sender: FDA-Public Use
  Company Number: USA-2005-0020600

PATIENT
  Age: 28 Year
  Sex: Male

DRUGS (6)
  1. OXYCONTIN [Suspect]
     Indication: PAIN
     Dosage: 10 MG, AM; 20 MG, PM; 10 MG, BID; 20 MG, BID
     Dates: start: 20050501
  2. OXYCONTIN [Suspect]
     Indication: PAIN
     Dosage: 10 MG, AM; 20 MG, PM; 10 MG, BID; 20 MG, BID
     Dates: start: 20050615
  3. OXYCONTIN [Suspect]
     Indication: PAIN
     Dosage: 10 MG, AM; 20 MG, PM; 10 MG, BID; 20 MG, BID
     Dates: start: 20050615
  4. OXYCODONE HCL [Concomitant]
  5. XANAX XR [Concomitant]
  6. XANAX [Concomitant]

REACTIONS (4)
  - ANXIETY [None]
  - DRUG HYPERSENSITIVITY [None]
  - INADEQUATE ANALGESIA [None]
  - RESPIRATORY DISTRESS [None]
